FAERS Safety Report 10517931 (Version 1)
Quarter: 2014Q4

REPORT INFORMATION
  Report Type: Spontaneous
  Country: IT (occurrence: IT)
  Receive Date: 20141015
  Receipt Date: 20141015
  Transmission Date: 20150528
  Serious: Yes (Disabling, Other)
  Sender: FDA-Public Use
  Company Number: IT-AMGEN-ITASP2014078046

PATIENT
  Age: 61 Year
  Sex: Female

DRUGS (9)
  1. ASCRIPTIN [Concomitant]
     Active Substance: ASPIRIN
     Dosage: UNK
     Route: 048
     Dates: start: 2007
  2. CAPECITABINE. [Concomitant]
     Active Substance: CAPECITABINE
     Dosage: UNK
     Dates: start: 201304
  3. BONDRONAT                          /01304701/ [Suspect]
     Active Substance: IBANDRONIC ACID
     Indication: BREAST CANCER
     Dosage: 1 POSOLOGIC UNI, QD
     Route: 048
     Dates: start: 20130411, end: 20140515
  4. CRESTOR [Concomitant]
     Active Substance: ROSUVASTATIN CALCIUM
     Dosage: UNK
     Dates: start: 2006
  5. LYRICA [Concomitant]
     Active Substance: PREGABALIN
     Dosage: 75 MG, UNK
     Route: 048
  6. XGEVA [Suspect]
     Active Substance: DENOSUMAB
     Indication: BREAST CANCER
     Dosage: 1 POSOLOGIC UNIT, CYCLIC
     Route: 058
     Dates: start: 20140617, end: 20140819
  7. DIBASE [Concomitant]
     Active Substance: CHOLECALCIFEROL
     Dosage: 10000 IU/ML, UNK
     Route: 048
     Dates: start: 201406
  8. HALAVEN [Concomitant]
     Active Substance: ERIBULIN MESYLATE
     Dosage: UNK
     Dates: start: 201406
  9. SELEPARINA [Concomitant]
     Active Substance: NADROPARIN CALCIUM
     Dosage: UNK
     Dates: start: 2013

REACTIONS (1)
  - Osteonecrosis of jaw [Not Recovered/Not Resolved]
